FAERS Safety Report 23112935 (Version 1)
Quarter: 2023Q4

REPORT INFORMATION
  Report Type: Spontaneous
  Country: DK (occurrence: DK)
  Receive Date: 20231027
  Receipt Date: 20231027
  Transmission Date: 20240109
  Serious: Yes (Hospitalization)
  Sender: FDA-Public Use
  Company Number: None

PATIENT
  Age: 54 Year
  Sex: Male
  Weight: 90 kg

DRUGS (12)
  1. EPLERENONE TEVA [Concomitant]
     Indication: Product used for unknown indication
     Dosage: UNK
     Dates: start: 20190729
  2. NICORANDIL RIVOPHARM [Concomitant]
     Indication: Angina pectoris
     Dosage: UNK
     Dates: start: 20230821, end: 20231005
  3. METOPROLOL SUCCINATE [Concomitant]
     Active Substance: METOPROLOL SUCCINATE
     Indication: Cardiac failure
     Dosage: UNK
     Dates: start: 20160729
  4. RYBELSUS [Suspect]
     Active Substance: SEMAGLUTIDE
     Indication: Diabetes mellitus
     Dosage: 3 MG, QD
     Route: 048
     Dates: start: 20230816, end: 20230918
  5. OMNISTAD [Concomitant]
     Indication: Urinary retention
     Dosage: UNK
     Dates: start: 20180723
  6. DAPAGLIFLOZIN [Concomitant]
     Active Substance: DAPAGLIFLOZIN
     Indication: Cardiac failure
     Dosage: UNK
     Dates: start: 20230609
  7. DIGOXIN [Concomitant]
     Active Substance: DIGOXIN
     Indication: Atrial fibrillation
     Dosage: UNK
     Dates: start: 20200916
  8. LOSARTAN POTASSIUM [Concomitant]
     Active Substance: LOSARTAN POTASSIUM
     Indication: Cardiac failure
     Dosage: UNK
     Dates: start: 20230522
  9. PANTOPRAZOLE SODIUM [Concomitant]
     Active Substance: PANTOPRAZOLE SODIUM
     Indication: Gastritis
     Dosage: UNK
     Dates: start: 20220816
  10. FUROSEMIDE [Concomitant]
     Active Substance: FUROSEMIDE
     Indication: Cardiac failure
     Dosage: UNK
     Dates: start: 20221209
  11. DULOXETIN STADA [Concomitant]
     Indication: Neuralgia
     Dosage: UNK
     Dates: start: 20220712
  12. XARELTO [Concomitant]
     Active Substance: RIVAROXABAN
     Indication: Atrial fibrillation
     Dosage: UNK
     Dates: start: 20230522

REACTIONS (3)
  - Nephrolithiasis [Recovered/Resolved]
  - Hydronephrosis [Unknown]
  - Cholelithiasis [Recovered/Resolved]

NARRATIVE: CASE EVENT DATE: 20230825
